FAERS Safety Report 8446880-4 (Version None)
Quarter: 2012Q2

REPORT INFORMATION
  Report Type: 
  Country: None (occurrence: None)
  Receive Date: 20120612
  Receipt Date: 20120612
  Transmission Date: 20120825
  Serious: Yes (Hospitalization)
  Sender: FDA-Public Use
  Company Number: None

PATIENT
  Age: 78 Year
  Sex: Male
  Weight: 61.5 kg

DRUGS (3)
  1. WARFARIN SODIUM [Suspect]
     Indication: PULMONARY EMBOLISM
     Dosage: 5 MG AT BEDTIME PO
     Route: 048
     Dates: start: 20120413, end: 20120515
  2. WARFARIN SODIUM [Suspect]
     Indication: DEEP VEIN THROMBOSIS
     Dosage: 5 MG AT BEDTIME PO
     Route: 048
     Dates: start: 20120413, end: 20120515
  3. WARFARIN SODIUM [Suspect]
     Indication: ATRIAL FIBRILLATION
     Dosage: 5 MG AT BEDTIME PO
     Route: 048
     Dates: start: 20120413, end: 20120515

REACTIONS (5)
  - INTERNATIONAL NORMALISED RATIO INCREASED [None]
  - TREATMENT NONCOMPLIANCE [None]
  - HAEMARTHROSIS [None]
  - HAEMORRHAGE [None]
  - CONDITION AGGRAVATED [None]
